FAERS Safety Report 17064960 (Version 1)
Quarter: 2019Q4

REPORT INFORMATION
  Report Type: Spontaneous
  Country: US (occurrence: US)
  Receive Date: 20191024
  Receipt Date: 20191024
  Transmission Date: 20200122
  Serious: No
  Sender: FDA-Public Use
  Company Number: None

PATIENT

DRUGS (2)
  1. ACETYLSETEINE [Suspect]
     Active Substance: ACETYLCYSTEINE
     Route: 042
  2. ACETYCYSTEINE [Suspect]
     Active Substance: ACETYLCYSTEINE
     Route: 055

REACTIONS (2)
  - Product label confusion [None]
  - Physical product label issue [None]
